FAERS Safety Report 19380540 (Version 1)
Quarter: 2021Q2

REPORT INFORMATION
  Report Type: Spontaneous
  Country: US (occurrence: US)
  Receive Date: 20210607
  Receipt Date: 20210607
  Transmission Date: 20210717
  Serious: Yes (Other)
  Sender: FDA-Public Use
  Company Number: US-B.I. PHARMACEUTICALS,INC./RIDGEFIELD-2021-BI-106887

PATIENT
  Sex: Male

DRUGS (4)
  1. PIOGLITAZONE. [Concomitant]
     Active Substance: PIOGLITAZONE
     Indication: PRODUCT USED FOR UNKNOWN INDICATION
  2. INSULIN BASAL [Concomitant]
     Active Substance: INSULIN NOS
     Indication: PRODUCT USED FOR UNKNOWN INDICATION
  3. JARDIANCE [Suspect]
     Active Substance: EMPAGLIFLOZIN
     Indication: PRODUCT USED FOR UNKNOWN INDICATION
     Dosage: 25MG
  4. TRULICITY [Concomitant]
     Active Substance: DULAGLUTIDE
     Indication: PRODUCT USED FOR UNKNOWN INDICATION

REACTIONS (1)
  - Cardiac failure [Unknown]
